FAERS Safety Report 9471039 (Version 1)
Quarter: 2013Q3

REPORT INFORMATION
  Report Type: Spontaneous
  Country: CA (occurrence: None)
  Receive Date: 20130816
  Receipt Date: 20130816
  Transmission Date: 20140515
  Serious: Yes (Life-Threatening, Hospitalization)
  Sender: FDA-Public Use
  Company Number: 1713747-2013-99932

PATIENT
  Sex: Male

DRUGS (6)
  1. SALINE [Suspect]
  2. FRESNIUS 2008K HOME HEMODIALYSIS MACHINE [Concomitant]
  3. BLOODLINES [Concomitant]
  4. SALINE [Concomitant]
  5. CONCENTRATE [Concomitant]
  6. DIALYZER [Concomitant]

REACTIONS (1)
  - Adverse event [None]
